FAERS Safety Report 5713033-X (Version None)
Quarter: 2008Q2

REPORT INFORMATION
  Report Type: 
  Country: None (occurrence: None)
  Receive Date: 20080422
  Receipt Date: 20080415
  Transmission Date: 20081010
  Serious: No
  Sender: FDA-Public Use
  Company Number: US-BAXTER-2008BH003607

PATIENT
  Age: 38 Year
  Sex: Male
  Weight: 108 kg

DRUGS (2)
  1. HEPARIN SODIUM [Suspect]
     Indication: PROPHYLAXIS
     Dosage: DOSE UNIT:UNKNOWN
     Route: 065
     Dates: start: 20070401, end: 20080401
  2. SENSIPAR [Concomitant]
     Indication: THYROID DISORDER
     Dosage: DOSE UNIT:UNKNOWN
     Route: 065

REACTIONS (2)
  - ABDOMINAL PAIN UPPER [None]
  - NAUSEA [None]
